FAERS Safety Report 5660279-5 (Version None)
Quarter: 2008Q1

REPORT INFORMATION
  Report Type: 
  Country: None (occurrence: None)
  Receive Date: 20080214
  Receipt Date: 20071109
  Transmission Date: 20080703
  Serious: No
  Sender: FDA-Public Use
  Company Number: WAES 0711USA02187

PATIENT
  Age: 55 Year
  Sex: Male

DRUGS (9)
  1. TAB ISENTRESS [Suspect]
     Indication: HIV INFECTION
     Dosage: 400 MG/BID
     Dates: start: 20071022
  2. COMBIVIR [Concomitant]
  3. FLOVENT [Concomitant]
  4. SEREVENT [Concomitant]
  5. SINGULAIR [Concomitant]
  6. ZOCOR [Concomitant]
  7. ACYCLOVIR SODIUM [Concomitant]
  8. IBUROFEN [Concomitant]
  9. VERAPAMIL [Concomitant]

REACTIONS (2)
  - FLATULENCE [None]
  - NAUSEA [None]
